FAERS Safety Report 5512654-7 (Version None)
Quarter: 2007Q4

REPORT INFORMATION
  Report Type: 
  Country: None (occurrence: None)
  Receive Date: 20071108
  Receipt Date: 20071101
  Transmission Date: 20080405
  Serious: Yes (Other)
  Sender: FDA-Public Use
  Company Number: ACO_00395_2007

PATIENT
  Sex: Male

DRUGS (3)
  1. ZANAFLEX [Suspect]
     Indication: DRUG USE FOR UNKNOWN INDICATION
     Dosage: (DF)
  2. BACLOFEN [Suspect]
     Indication: MUSCLE SPASTICITY
     Dosage: (DF INTRATHECAL)
     Route: 037
  3. KLONOCPIN [Concomitant]

REACTIONS (13)
  - BACK PAIN [None]
  - DEVICE LEAKAGE [None]
  - DIZZINESS [None]
  - GAIT DISTURBANCE [None]
  - HYPERTONIA [None]
  - HYPOAESTHESIA [None]
  - LIVER FUNCTION TEST ABNORMAL [None]
  - MUSCLE SPASMS [None]
  - MUSCULOSKELETAL STIFFNESS [None]
  - NAUSEA [None]
  - PARAESTHESIA [None]
  - RENAL CYST [None]
  - VOMITING [None]
